FAERS Safety Report 17006703 (Version 1)
Quarter: 2019Q4

REPORT INFORMATION
  Report Type: Spontaneous
  Country: US (occurrence: US)
  Receive Date: 20191106
  Receipt Date: 20191106
  Transmission Date: 20200122
  Serious: Yes (Life-Threatening, Hospitalization)
  Sender: FDA-Public Use
  Company Number: None

PATIENT
  Age: 75 Year
  Sex: Female
  Weight: 58.5 kg

DRUGS (3)
  1. PLAVIX [Suspect]
     Active Substance: CLOPIDOGREL BISULFATE
     Indication: TRANSIENT ISCHAEMIC ATTACK
     Dosage: ?          QUANTITY:1 TABLET(S);?
     Route: 048
     Dates: end: 20190529
  2. GLUCOSAMINE [Concomitant]
     Active Substance: GLUCOSAMINE
  3. CITRACEL [Concomitant]

REACTIONS (2)
  - Pulmonary haemorrhage [None]
  - Product prescribing issue [None]

NARRATIVE: CASE EVENT DATE: 20190529
